FAERS Safety Report 5269271-6 (Version None)
Quarter: 2007Q1

REPORT INFORMATION
  Report Type: 
  Country: None (occurrence: None)
  Receive Date: 20070319
  Receipt Date: 20070307
  Transmission Date: 20070707
  Serious: Yes (Other)
  Sender: FDA-Public Use
  Company Number: FR-PFIZER INC-2006116333

PATIENT
  Sex: Male

DRUGS (6)
  1. NEURONTIN [Suspect]
     Indication: FACIAL NEURALGIA
  2. LYRICA [Suspect]
     Indication: FACIAL NEURALGIA
     Route: 048
  3. LYRICA [Suspect]
     Indication: PAIN
  4. TEGRETOL [Concomitant]
  5. RIVOTRIL [Concomitant]
  6. MORPHINE SULFATE [Concomitant]

REACTIONS (16)
  - ABNORMAL DREAMS [None]
  - CONSTIPATION [None]
  - DIPLOPIA [None]
  - DRUG INEFFECTIVE [None]
  - FATIGUE [None]
  - FEELING DRUNK [None]
  - HEADACHE [None]
  - IMPAIRED DRIVING ABILITY [None]
  - MUSCULOSKELETAL CHEST PAIN [None]
  - OCULOGYRATION [None]
  - PAIN [None]
  - SOMNOLENCE [None]
  - TACHYCARDIA [None]
  - VERTIGO [None]
  - VISION BLURRED [None]
  - VISUAL DISTURBANCE [None]
